FAERS Safety Report 7358169-5 (Version None)
Quarter: 2011Q1

REPORT INFORMATION
  Report Type: 
  Country: None (occurrence: None)
  Receive Date: 20110317
  Receipt Date: 20110311
  Transmission Date: 20110831
  Serious: Yes (Hospitalization, Other)
  Sender: FDA-Public Use
  Company Number: US-PFIZER INC-2006031574

PATIENT
  Sex: Female

DRUGS (10)
  1. XANAX [Suspect]
     Indication: ILL-DEFINED DISORDER
  2. TOPAMAX [Suspect]
     Indication: ILL-DEFINED DISORDER
  3. NAPROSYN [Suspect]
     Indication: ILL-DEFINED DISORDER
     Dosage: 50 MG, 2X/DAY
     Dates: start: 20030131
  4. WELLBUTRIN [Suspect]
     Indication: ILL-DEFINED DISORDER
  5. NEURONTIN [Suspect]
     Indication: ILL-DEFINED DISORDER
     Dosage: UNK
     Dates: start: 20020731
  6. PLAVIX [Concomitant]
     Dosage: 75 MG, 1X/DAY
     Dates: start: 20030924
  7. LASIX [Concomitant]
     Dosage: 40 MG, 1X/DAY
  8. TYLENOL W/ CODEINE NO. 3 [Suspect]
     Indication: ILL-DEFINED DISORDER
  9. ATACAND [Concomitant]
     Dosage: 32 MG, 1X/DAY
  10. PREVACID [Concomitant]
     Dosage: 30 MG, 1X/DAY
     Dates: start: 20030924

REACTIONS (3)
  - SUICIDE ATTEMPT [None]
  - INTENTIONAL OVERDOSE [None]
  - SUICIDAL IDEATION [None]
